FAERS Safety Report 6233457-4 (Version None)
Quarter: 2009Q2

REPORT INFORMATION
  Report Type: 
  Country: None (occurrence: None)
  Receive Date: 20090616
  Receipt Date: 20090616
  Transmission Date: 20091009
  Serious: No
  Sender: FDA-Public Use
  Company Number: None

PATIENT
  Age: 37 Year
  Sex: Male
  Weight: 81.6475 kg

DRUGS (1)
  1. ALLEGRA [Suspect]
     Indication: RHINITIS ALLERGIC
     Dates: start: 20090609, end: 20090611

REACTIONS (1)
  - MIGRAINE [None]
